APPROVED DRUG PRODUCT: ELETRIPTAN HYDROBROMIDE
Active Ingredient: ELETRIPTAN HYDROBROMIDE
Strength: EQ 40MG BASE
Dosage Form/Route: TABLET;ORAL
Application: A206787 | Product #002
Applicant: JEROME STEVENS PHARMACEUTICALS INC
Approved: May 25, 2018 | RLD: No | RS: No | Type: DISCN